FAERS Safety Report 4714052-2 (Version None)
Quarter: 2005Q3

REPORT INFORMATION
  Report Type: 
  Country: None (occurrence: None)
  Receive Date: 20050713
  Receipt Date: 20050713
  Transmission Date: 20060218
  Serious: Yes (Hospitalization)
  Sender: FDA-Public Use
  Company Number: None

PATIENT
  Age: 62 Year
  Sex: Male
  Weight: 84.8226 kg

DRUGS (1)
  1. ABCIXIMAB [Suspect]
     Indication: CORONARY ANGIOPLASTY
     Dosage: 10 MCG/MIN CONTINOUS INTRAVENOU
     Route: 042
     Dates: start: 20050602, end: 20050603

REACTIONS (3)
  - PLATELET COUNT DECREASED [None]
  - POST PROCEDURAL COMPLICATION [None]
  - WOUND SECRETION [None]
